FAERS Safety Report 16375690 (Version 6)
Quarter: 2020Q3

REPORT INFORMATION
  Report Type: Spontaneous
  Country: US (occurrence: US)
  Receive Date: 20190531
  Receipt Date: 20200831
  Transmission Date: 20201102
  Serious: Yes (Hospitalization, Other)
  Sender: FDA-Public Use
  Company Number: US-GILEAD-2019-0410809

PATIENT
  Age: 35 Year
  Sex: Male

DRUGS (16)
  1. HYDROCODONE BITARTRATE AND ACETAMINOPHEN [Concomitant]
     Active Substance: ACETAMINOPHEN\HYDROCODONE BITARTRATE
  2. ABILIFY [Concomitant]
     Active Substance: ARIPIPRAZOLE
  3. TRUVADA [Suspect]
     Active Substance: EMTRICITABINE\TENOFOVIR DISOPROXIL FUMARATE
     Indication: HIV INFECTION
     Dosage: 1 DF 200MG?300MG QD
     Route: 048
     Dates: start: 20100924, end: 201403
  4. TRAZODONE [Concomitant]
     Active Substance: TRAZODONE HYDROCHLORIDE
  5. DOXEPIN [Concomitant]
     Active Substance: DOXEPIN
  6. SEROQUEL [Concomitant]
     Active Substance: QUETIAPINE FUMARATE
  7. ISENTRESS [Concomitant]
     Active Substance: RALTEGRAVIR POTASSIUM
  8. NEXIUM I.V. [Concomitant]
     Active Substance: ESOMEPRAZOLE SODIUM
  9. KLONOPIN [Concomitant]
     Active Substance: CLONAZEPAM
  10. K?DUR [Concomitant]
     Active Substance: POTASSIUM CHLORIDE
  11. PROZAC [Concomitant]
     Active Substance: FLUOXETINE HYDROCHLORIDE
  12. ANAFRANIL [Concomitant]
     Active Substance: CLOMIPRAMINE HYDROCHLORIDE
  13. ZANTAC [Concomitant]
     Active Substance: RANITIDINE HYDROCHLORIDE
  14. RETROVIR [Concomitant]
     Active Substance: ZIDOVUDINE
  15. DIAZEPAM. [Concomitant]
     Active Substance: DIAZEPAM
  16. PAXIL [PIROXICAM] [Concomitant]
     Active Substance: PIROXICAM

REACTIONS (15)
  - Chronic kidney disease [Not Recovered/Not Resolved]
  - Spinal compression fracture [Recovered/Resolved]
  - Tooth disorder [Not Recovered/Not Resolved]
  - Bone density decreased [Unknown]
  - Bone loss [Unknown]
  - Economic problem [Not Recovered/Not Resolved]
  - Fracture [Unknown]
  - Anxiety [Not Recovered/Not Resolved]
  - Pain [Not Recovered/Not Resolved]
  - Osteoporosis [Not Recovered/Not Resolved]
  - Renal failure [Not Recovered/Not Resolved]
  - Emotional distress [Not Recovered/Not Resolved]
  - Anhedonia [Not Recovered/Not Resolved]
  - Osteonecrosis [Unknown]
  - Acute kidney injury [Recovered/Resolved]

NARRATIVE: CASE EVENT DATE: 201205
